FAERS Safety Report 21384035 (Version 1)
Quarter: 2022Q3

REPORT INFORMATION
  Report Type: Report from Study
  Country: US (occurrence: US)
  Receive Date: 20220928
  Receipt Date: 20220928
  Transmission Date: 20221027
  Serious: Yes (Other)
  Sender: FDA-Public Use
  Company Number: US-ABBVIE-4129966

PATIENT

DRUGS (3)
  1. HUMIRA [Suspect]
     Active Substance: ADALIMUMAB
     Indication: Psoriatic arthropathy
     Route: 058
  2. XELJANZ [Concomitant]
     Active Substance: TOFACITINIB CITRATE
     Indication: Multiple sclerosis
  3. METHOTREXATE [Concomitant]
     Active Substance: METHOTREXATE
     Indication: Psoriasis

REACTIONS (6)
  - Multiple sclerosis relapse [Recovered/Resolved]
  - Bursitis [Recovering/Resolving]
  - Psoriasis [Recovered/Resolved]
  - Psoriatic arthropathy [Unknown]
  - Unevaluable event [Unknown]
  - COVID-19 [Unknown]
